FAERS Safety Report 25970631 (Version 1)
Quarter: 2025Q4

REPORT INFORMATION
  Report Type: Spontaneous
  Country: US (occurrence: US)
  Receive Date: 20251028
  Receipt Date: 20251028
  Transmission Date: 20260118
  Serious: No
  Sender: CALLIDITAS THERAPEUTICS AB
  Company Number: US-Calliditas-2024CAL01288

PATIENT
  Age: 54 Year
  Sex: Male
  Weight: 110 kg

DRUGS (9)
  1. TARPEYO [Suspect]
     Active Substance: BUDESONIDE
     Indication: IgA nephropathy
     Route: 048
     Dates: start: 20240423
  2. AMLODIPINE [Concomitant]
     Active Substance: AMLODIPINE BESYLATE
  3. ALLOPURINOL [Concomitant]
     Active Substance: ALLOPURINOL
  4. CALCITRIOL [Concomitant]
     Active Substance: CALCITRIOL
  5. CHOLECALCIFEROL [Concomitant]
     Active Substance: CHOLECALCIFEROL
  6. FARXIGA [Concomitant]
     Active Substance: DAPAGLIFLOZIN PROPANEDIOL
  7. FILSPARI [Concomitant]
     Active Substance: SPARSENTAN
  8. FISH OIL [Concomitant]
     Active Substance: FISH OIL
  9. SODIUM BICARBONATE [Concomitant]
     Active Substance: SODIUM BICARBONATE

REACTIONS (2)
  - Blood pressure increased [Recovered/Resolved]
  - Therapy cessation [Unknown]
